FAERS Safety Report 9160515 (Version 1)
Quarter: 2013Q1

REPORT INFORMATION
  Report Type: Spontaneous
  Country: FR (occurrence: None)
  Receive Date: 20130219
  Receipt Date: 20130219
  Transmission Date: 20140127
  Serious: Yes (Hospitalization)
  Sender: FDA-Public Use
  Company Number: DSM-2013-00183

PATIENT
  Age: 84 Year
  Sex: Female

DRUGS (2)
  1. COOLMETEC [Suspect]
     Indication: HYPERTENSION
     Route: 048
     Dates: start: 2006, end: 20071210
  2. MINIRIN [Suspect]
     Indication: ENURESIS
     Route: 045
     Dates: start: 20071128, end: 20071205

REACTIONS (3)
  - Fall [None]
  - Hyponatraemia [None]
  - Balance disorder [None]
